FAERS Safety Report 7949343-5 (Version None)
Quarter: 2011Q4

REPORT INFORMATION
  Report Type: 
  Country: None (occurrence: None)
  Receive Date: 20111125
  Receipt Date: 20111116
  Transmission Date: 20120403
  Serious: Yes (Hospitalization, Other)
  Sender: FDA-Public Use
  Company Number: AUR-APL-2011-05622

PATIENT
  Sex: Male

DRUGS (3)
  1. AUGMENTIN '125' [Suspect]
     Indication: PRODUCT USED FOR UNKNOWN INDICATION
     Dosage: UNKNOWN
  2. CIPRO [Suspect]
     Indication: PRODUCT USED FOR UNKNOWN INDICATION
     Dosage: UNKNOWN
  3. SEPTRA [Suspect]
     Indication: PRODUCT USED FOR UNKNOWN INDICATION
     Dosage: ORAL
     Route: 048
     Dates: start: 20110930

REACTIONS (11)
  - BLISTER [None]
  - PAIN [None]
  - ONYCHOMADESIS [None]
  - OSTEOMYELITIS [None]
  - MALAISE [None]
  - SKIN EXFOLIATION [None]
  - SEPSIS [None]
  - LOSS OF CONSCIOUSNESS [None]
  - LOCALISED INFECTION [None]
  - CONFUSIONAL STATE [None]
  - HYPERSENSITIVITY [None]
